FAERS Safety Report 20140114 (Version 1)
Quarter: 2021Q4

REPORT INFORMATION
  Report Type: Spontaneous
  Country: US (occurrence: US)
  Receive Date: 20211202
  Receipt Date: 20211202
  Transmission Date: 20220303
  Serious: No
  Sender: FDA-Public Use
  Company Number: US-PFIZER INC-2021509021

PATIENT
  Age: 80 Year
  Sex: Female
  Weight: 69.85 kg

DRUGS (1)
  1. PREMARIN [Suspect]
     Active Substance: ESTROGENS, CONJUGATED
     Indication: Hot flush
     Dosage: 0.45 MG, 1X/DAY
     Route: 048

REACTIONS (2)
  - Memory impairment [Unknown]
  - Intentional product misuse [Unknown]
